FAERS Safety Report 9119750 (Version 1)
Quarter: 2013Q1

REPORT INFORMATION
  Report Type: Report from Study
  Country: CA (occurrence: CA)
  Receive Date: 20130226
  Receipt Date: 20130226
  Transmission Date: 20140127
  Serious: Yes (Other)
  Sender: FDA-Public Use
  Company Number: CA-JNJFOC-20130211877

PATIENT
  Sex: Female
  Weight: 90.72 kg

DRUGS (9)
  1. STELARA [Suspect]
     Indication: PSORIASIS
     Dates: start: 20120507
  2. MICARDIS [Concomitant]
     Route: 048
  3. ADALAT [Concomitant]
     Route: 048
  4. HCT [Concomitant]
     Route: 048
  5. GLYBURIDE [Concomitant]
     Route: 048
  6. METFORMIN [Concomitant]
     Route: 048
  7. TERAZOSIN [Concomitant]
     Route: 048
  8. SLOW K [Concomitant]
     Route: 048
  9. LIPITOR [Concomitant]
     Route: 048

REACTIONS (1)
  - Cellulitis [Unknown]
